FAERS Safety Report 21039379 (Version 1)
Quarter: 2022Q3

REPORT INFORMATION
  Report Type: Spontaneous
  Country: FR (occurrence: FR)
  Receive Date: 20220704
  Receipt Date: 20220704
  Transmission Date: 20221026
  Serious: Yes (Other)
  Sender: FDA-Public Use
  Company Number: FR-NOVARTISPH-NVSC2022FR150166

PATIENT
  Age: 19 Year
  Weight: 71 kg

DRUGS (4)
  1. MEKINIST [Suspect]
     Active Substance: TRAMETINIB DIMETHYL SULFOXIDE
     Indication: Ganglioglioma
     Dosage: 1.5 MG, QD
     Route: 065
     Dates: start: 202111
  2. MEKINIST [Suspect]
     Active Substance: TRAMETINIB DIMETHYL SULFOXIDE
     Indication: BRAF gene mutation
  3. TAFINLAR [Suspect]
     Active Substance: DABRAFENIB MESYLATE
     Indication: Ganglioglioma
     Dosage: 250 MG, QD
     Route: 065
     Dates: start: 202111
  4. TAFINLAR [Suspect]
     Active Substance: DABRAFENIB MESYLATE
     Indication: BRAF gene mutation

REACTIONS (4)
  - Recurrent cancer [Unknown]
  - Weight increased [Unknown]
  - Wrong technique in product usage process [Unknown]
  - Drug ineffective for unapproved indication [Unknown]
